FAERS Safety Report 4347592-9 (Version None)
Quarter: 2004Q1

REPORT INFORMATION
  Report Type: 
  Country: None (occurrence: None)
  Receive Date: 20040325
  Receipt Date: 20040206
  Transmission Date: 20041129
  Serious: No
  Sender: FDA-Public Use
  Company Number: US_0402100817

PATIENT
  Sex: Female

DRUGS (5)
  1. FORTEO [Suspect]
     Dosage: 20 UG/DAY
     Dates: start: 20040201
  2. PREDNISONE [Concomitant]
  3. CALCIUM WITH VITAMIN D [Concomitant]
  4. FOSAMAX [Concomitant]
  5. IMMUNE GLOBULIN INTRAVENOUS (HUMAN) [Concomitant]

REACTIONS (6)
  - BLOOD PRESSURE INCREASED [None]
  - BURNING SENSATION [None]
  - HYPOAESTHESIA ORAL [None]
  - INJECTION SITE ERYTHEMA [None]
  - MUSCLE TWITCHING [None]
  - PARAESTHESIA [None]
